FAERS Safety Report 6941466 (Version 2)
Quarter: 2021Q2

REPORT INFORMATION
  Report Type: Spontaneous
  Country: AU (occurrence: AU)
  Receive Date: 20090316
  Receipt Date: 20210419
  Transmission Date: 20210717
  Serious: Yes (Life-Threatening, Hospitalization, Other)
  Sender: FDA-Public Use
  Company Number: AU-PFIZER INC-2009177402

PATIENT
  Age: 16 Year
  Sex: Female

DRUGS (4)
  1. HYDROXYCHLOROQUINE SULFATE. [Suspect]
     Active Substance: HYDROXYCHLOROQUINE SULFATE
     Dosage: 20 G
  2. FOLATE SODIUM [Suspect]
     Active Substance: FOLATE SODIUM
     Dosage: UP TO 500 MG
  3. METHOTREXATE SODIUM. [Suspect]
     Active Substance: METHOTREXATE SODIUM
     Dosage: UP TO 470 MG
  4. PREDNISOLONE. [Suspect]
     Active Substance: PREDNISOLONE
     Dosage: UP TO 30 MG

REACTIONS (4)
  - Circulatory collapse [Recovered/Resolved]
  - Hypokalaemia [Recovered/Resolved]
  - Overdose [Recovered/Resolved]
  - Ventricular tachycardia [Recovered/Resolved]
